FAERS Safety Report 7877714-4 (Version None)
Quarter: 2011Q4

REPORT INFORMATION
  Report Type: 
  Country: None (occurrence: None)
  Receive Date: 20111031
  Receipt Date: 20111031
  Transmission Date: 20120403
  Serious: Yes (Life-Threatening, Hospitalization, Other)
  Sender: FDA-Public Use
  Company Number: None

PATIENT
  Age: 20 Year
  Sex: Female
  Weight: 56.699 kg

DRUGS (4)
  1. COMPAZINE [Suspect]
     Indication: NAUSEA
     Dosage: 5MG
     Route: 048
     Dates: start: 20110812, end: 20110814
  2. ZOFRAN [Concomitant]
  3. CELEXA [Concomitant]
  4. VICODIN [Concomitant]

REACTIONS (3)
  - MYDRIASIS [None]
  - BLINDNESS [None]
  - TARDIVE DYSKINESIA [None]
